FAERS Safety Report 5170392-7 (Version None)
Quarter: 2006Q4

REPORT INFORMATION
  Report Type: 
  Country: None (occurrence: None)
  Receive Date: 20061205
  Receipt Date: 20061120
  Transmission Date: 20070319
  Serious: Yes (Hospitalization, Other)
  Sender: FDA-Public Use
  Company Number: 2006137909

PATIENT
  Age: 60 Year
  Sex: Female

DRUGS (16)
  1. LYRICA [Suspect]
     Indication: MUSCULOSKELETAL PAIN
     Dosage: 300 MG (150 MG, 2 IN 1 D), ORAL
     Route: 048
  2. LYRICA [Suspect]
     Indication: NECK PAIN
     Dosage: 300 MG (150 MG, 2 IN 1 D), ORAL
     Route: 048
  3. BETOLVEX (CYANOCOBALAMIN-TANNIN COMPLEX) [Concomitant]
  4. SERETIDE (FLUTICASONE PROPIONATE, SALMETEROL XINAFOATE) [Concomitant]
  5. ATROVENT [Concomitant]
  6. BISOLVON (BROMHEXINE HYDROCHLORIDE) [Concomitant]
  7. ZYRTEC [Concomitant]
  8. NOBLIGAN (TRAMADOL HYDROCHLORIDE) [Concomitant]
  9. PARACET (PARACETAMOL) [Concomitant]
  10. IMOVANE (ZOPICLONE) [Concomitant]
  11. DERMOVAT (CLOBETASOL PROPIONATE) [Concomitant]
  12. LEVOTHYROXINE SODIUM [Concomitant]
  13. ACTIVELLE [Concomitant]
  14. DOXYCYCLINE HYCLATE (DOXYCYCLINE HYCLATE) [Concomitant]
  15. NEXIUM [Concomitant]
  16. MYCOSTATIN [Concomitant]

REACTIONS (3)
  - BACK DISORDER [None]
  - FATIGUE [None]
  - PAIN IN EXTREMITY [None]
